FAERS Safety Report 20507527 (Version 1)
Quarter: 2022Q1

REPORT INFORMATION
  Report Type: Spontaneous
  Country: US (occurrence: None)
  Receive Date: 20220218
  Receipt Date: 20220218
  Transmission Date: 20220423
  Serious: Yes (Other)
  Sender: FDA-Public Use
  Company Number: None

PATIENT

DRUGS (12)
  1. LEVOFLOXACIN [Suspect]
     Active Substance: LEVOFLOXACIN
     Indication: Product used for unknown indication
  2. TAMSULOSIN [Concomitant]
     Active Substance: TAMSULOSIN
  3. SIMVASTATIN [Concomitant]
     Active Substance: SIMVASTATIN
  4. LEVOTHYROXINE [Concomitant]
     Active Substance: LEVOTHYROXINE
  5. OMEPRAZOLE [Concomitant]
     Active Substance: OMEPRAZOLE
  6. DICLOFENAC [Concomitant]
     Active Substance: DICLOFENAC
  7. HYDROCHLOROTHIAZIDE\LISINOPRIL [Concomitant]
     Active Substance: HYDROCHLOROTHIAZIDE\LISINOPRIL
  8. CILOSTAZOL [Concomitant]
     Active Substance: CILOSTAZOL
  9. CLARITIN [Concomitant]
     Active Substance: LORATADINE
  10. CLOPIDOGREL [Concomitant]
     Active Substance: CLOPIDOGREL BISULFATE
  11. FLUTICASONE PROPIONATE [Concomitant]
     Active Substance: FLUTICASONE PROPIONATE
  12. ASPIRIN [Concomitant]
     Active Substance: ASPIRIN

REACTIONS (9)
  - Arthralgia [None]
  - Pain in extremity [None]
  - Balance disorder [None]
  - Balance disorder [None]
  - Neoplasm malignant [None]
  - Product complaint [None]
  - Tendon pain [None]
  - Product use complaint [None]
  - Pain [None]

NARRATIVE: CASE EVENT DATE: 20210419
